FAERS Safety Report 7757160-4 (Version None)
Quarter: 2011Q3

REPORT INFORMATION
  Report Type: 
  Country: None (occurrence: None)
  Receive Date: 20110916
  Receipt Date: 20110902
  Transmission Date: 20111222
  Serious: Yes (Hospitalization, Other)
  Sender: FDA-Public Use
  Company Number: US-SANOFI-AVENTIS-2011SA049630

PATIENT
  Age: 67 Year
  Sex: Female

DRUGS (5)
  1. CLONAZEPAM [Suspect]
     Route: 065
  2. LANTUS [Suspect]
     Dosage: DOSE:40 UNIT(S)
     Route: 058
     Dates: start: 20090101
  3. NEURONTIN [Suspect]
     Route: 065
  4. SOLOSTAR [Suspect]
     Dates: start: 20110101
  5. LANTUS [Suspect]
     Dosage: DOSE:25 UNIT(S)
     Route: 058
     Dates: start: 20110101

REACTIONS (13)
  - PRODUCT QUALITY ISSUE [None]
  - VISUAL ACUITY REDUCED [None]
  - BLOOD GLUCOSE INCREASED [None]
  - PERICARDIAL EFFUSION [None]
  - OEDEMA PERIPHERAL [None]
  - FACE INJURY [None]
  - URINARY TRACT INFECTION [None]
  - PYREXIA [None]
  - CATARACT OPERATION [None]
  - MYOCARDIAL INFARCTION [None]
  - NEPHROPATHY [None]
  - FALL [None]
  - GAIT DISTURBANCE [None]
